FAERS Safety Report 8695163 (Version 2)
Quarter: 2013Q4

REPORT INFORMATION
  Report Type: Spontaneous
  Country: US (occurrence: US)
  Receive Date: 20120731
  Receipt Date: 20131031
  Transmission Date: 20140711
  Serious: Yes (Other)
  Sender: FDA-Public Use
  Company Number: US-009507513-1207USA010273

PATIENT
  Age: 53 Year
  Sex: Male

DRUGS (12)
  1. JANUMET [Suspect]
     Route: 048
  2. PACERONE [Suspect]
     Dosage: 400 MG, BID
     Route: 048
  3. PACERONE [Suspect]
     Dosage: 200 MG, QD
     Route: 048
  4. DIGOXIN [Suspect]
  5. ZINC (UNSPECIFIED) [Concomitant]
  6. CINNAMON [Concomitant]
  7. CALCIUM (UNSPECIFIED) [Concomitant]
  8. MAGNESIUM (UNSPECIFIED) [Concomitant]
  9. COREG [Concomitant]
  10. LISINOPRIL [Concomitant]
  11. GLYBURIDE [Concomitant]
  12. LIPITOR [Concomitant]

REACTIONS (10)
  - Optic nerve infarction [Unknown]
  - Somnolence [Unknown]
  - Abnormal dreams [Unknown]
  - Optic nerve injury [Unknown]
  - Optic neuropathy [Unknown]
  - Drug intolerance [Unknown]
  - Halo vision [Unknown]
  - Blindness [Unknown]
  - Headache [Unknown]
  - Nausea [Unknown]
